FAERS Safety Report 20432487 (Version 1)
Quarter: 2022Q1

REPORT INFORMATION
  Report Type: Spontaneous
  Country: DE (occurrence: DE)
  Receive Date: 20220204
  Receipt Date: 20220204
  Transmission Date: 20220424
  Serious: Yes (Other)
  Sender: FDA-Public Use
  Company Number: DE-JNJFOC-20211238994

PATIENT
  Age: 57 Year
  Sex: Female
  Weight: 70 kg

DRUGS (3)
  1. ESTRADIOL [Suspect]
     Active Substance: ESTRADIOL
     Dosage: UNK
     Route: 065
     Dates: end: 202106
  2. ESTRADIOL [Suspect]
     Active Substance: ESTRADIOL
     Dosage: ^1 1/2 PUFF IN THE MORNING ;1 PUFF^
  3. UTROGESTAN [Suspect]
     Active Substance: PROGESTERONE
     Dosage: BEFORE SLEEPING
     Route: 048

REACTIONS (10)
  - Hypotension [Unknown]
  - Intentional product use issue [Unknown]
  - Arthralgia [Unknown]
  - Fatigue [Unknown]
  - Chest discomfort [Unknown]
  - Apathy [Unknown]
  - Pain [Unknown]
  - Depressed mood [Unknown]
  - Mood swings [Unknown]
  - Sleep disorder [Unknown]
